FAERS Safety Report 5597995-X (Version None)
Quarter: 2008Q1

REPORT INFORMATION
  Report Type: 
  Country: None (occurrence: None)
  Receive Date: 20080116
  Receipt Date: 20080107
  Transmission Date: 20080703
  Serious: Yes (Death, Other)
  Sender: FDA-Public Use
  Company Number: 2007-02904

PATIENT
  Age: 62 Year
  Sex: Male
  Weight: 66 kg

DRUGS (19)
  1. VELCADE [Suspect]
     Indication: MULTIPLE MYELOMA
     Dosage: 2.20 MG, INTRAVENOUS; 1.70 MG, INTRAVENOUS; 2.00 MG, INTRAVENOUS
     Route: 042
     Dates: start: 20061229, end: 20070105
  2. VELCADE [Suspect]
     Indication: MULTIPLE MYELOMA
     Dosage: 2.20 MG, INTRAVENOUS; 1.70 MG, INTRAVENOUS; 2.00 MG, INTRAVENOUS
     Route: 042
     Dates: start: 20070213, end: 20070809
  3. DEXAMETHASONE TAB [Concomitant]
  4. CEFAZOLIN SODIUM [Concomitant]
  5. EXACIN (ISEPAMICIN SULFATE) [Concomitant]
  6. PRODIF [Concomitant]
  7. NEU-UP (NARTOGRASTIM) [Concomitant]
  8. ALFAROL (ALFACALCIDOL) [Concomitant]
  9. LANSOPRAZOLE [Concomitant]
  10. COTRIM [Concomitant]
  11. SELBEX (TEPRENONE) [Concomitant]
  12. LOXONIN (LOXOPROFEN SODIUM) [Concomitant]
  13. STRONG NEO-MINOPHAGEN C (AMINOACETIC ACID, CYSTEINE, GLYCYRRHIZIC ACID [Concomitant]
  14. BIOFERMIN (STREPTOCOCCUS FAECALIS, LACTOBACILLUS ACIDOPHILUS, BACILLUS [Concomitant]
  15. ALLOPURINOL [Concomitant]
  16. GABAPENTIN [Concomitant]
  17. NORITREN(NOTRIPTYLINE HYDROCHLORIDE) [Concomitant]
  18. CLONAZEPAM [Concomitant]
  19. FUNGUARD [Concomitant]

REACTIONS (11)
  - CONSTIPATION [None]
  - DISEASE PROGRESSION [None]
  - EPISTAXIS [None]
  - HEPATIC FUNCTION ABNORMAL [None]
  - HYPOTENSION [None]
  - NEUROPATHY PERIPHERAL [None]
  - NEUTROPHIL COUNT DECREASED [None]
  - PYREXIA [None]
  - SEPSIS [None]
  - URTICARIA [None]
  - WHITE BLOOD CELL COUNT DECREASED [None]
